FAERS Safety Report 4925224-6 (Version None)
Quarter: 2006Q1

REPORT INFORMATION
  Report Type: 
  Country: None (occurrence: None)
  Receive Date: 20060228
  Receipt Date: 20060220
  Transmission Date: 20060701
  Serious: Yes (Other)
  Sender: FDA-Public Use
  Company Number: ES-JNJFOC-20060204303

PATIENT
  Sex: Male

DRUGS (6)
  1. REMICADE [Suspect]
     Indication: ANKYLOSING SPONDYLITIS
     Dosage: 1ST INFUSION.
     Route: 042
  2. POLARAMINE [Concomitant]
     Route: 042
  3. CORTISONE ACETATE TAB [Concomitant]
     Route: 042
  4. PREDNISONE [Concomitant]
     Indication: ANKYLOSING SPONDYLITIS
     Route: 042
  5. NAPROXEN [Concomitant]
     Indication: ANKYLOSING SPONDYLITIS
     Route: 042
  6. OMEPRAZOLE [Concomitant]
     Route: 042

REACTIONS (3)
  - HYPOTENSION [None]
  - INFUSION RELATED REACTION [None]
  - POLYURIA [None]
